FAERS Safety Report 9172802 (Version 1)
Quarter: 2013Q1

REPORT INFORMATION
  Report Type: Spontaneous
  Country: GB (occurrence: GB)
  Receive Date: 20130319
  Receipt Date: 20130319
  Transmission Date: 20140127
  Serious: Yes (Other)
  Sender: FDA-Public Use
  Company Number: GB-009507513-1303GBR008156

PATIENT
  Age: 74 Year
  Sex: Male
  Weight: 79.8 kg

DRUGS (1)
  1. EZETIMIBE [Suspect]
     Route: 048

REACTIONS (1)
  - Lichen planus [Recovering/Resolving]
